FAERS Safety Report 18254800 (Version 1)
Quarter: 2020Q3

REPORT INFORMATION
  Report Type: Spontaneous
  Country: FR (occurrence: FR)
  Receive Date: 20200910
  Receipt Date: 20200910
  Transmission Date: 20201103
  Serious: Yes (Hospitalization)
  Sender: FDA-Public Use
  Company Number: FR-PFIZER INC-2020347444

PATIENT
  Age: 76 Year
  Sex: Male
  Weight: 56 kg

DRUGS (7)
  1. ELIQUIS [Concomitant]
     Active Substance: APIXABAN
     Dosage: 5 MG COATED TABLET
  2. TAMSULOSINE [TAMSULOSIN] [Concomitant]
     Active Substance: TAMSULOSIN
  3. VYNDAQEL [Suspect]
     Active Substance: TAFAMIDIS MEGLUMINE
     Indication: CARDIAC AMYLOIDOSIS
     Dosage: 20 MG, 1X/DAY
     Route: 048
     Dates: start: 20200716, end: 20200726
  4. PANTOPRAZOLE [Concomitant]
     Active Substance: PANTOPRAZOLE
  5. GABAPENTIN. [Concomitant]
     Active Substance: GABAPENTIN
  6. ARTISIAL [Concomitant]
     Active Substance: CALCIUM CHLORIDE\MAGNESIUM CHLORIDE\POTASSIUM CHLORIDE\POTASSIUM PHOSPHATE, DIBASIC\POTASSIUM PHOSPHATE, MONOBASIC\SODIUM CHLORIDE
  7. CALCIDOSE [CALCIUM CARBONATE] [Concomitant]
     Active Substance: CALCIUM CARBONATE

REACTIONS (4)
  - Tachyarrhythmia [Recovered/Resolved]
  - Cardiac failure [Recovered/Resolved]
  - Off label use [Unknown]
  - Respiratory distress [Recovered/Resolved]

NARRATIVE: CASE EVENT DATE: 20200716
